FAERS Safety Report 22520578 (Version 1)
Quarter: 2023Q2

REPORT INFORMATION
  Report Type: Spontaneous
  Country: US (occurrence: None)
  Receive Date: 20230604
  Receipt Date: 20230604
  Transmission Date: 20230722
  Serious: Yes (unspecified)
  Sender: FDA-Public Use
  Company Number: None

PATIENT
  Sex: Male

DRUGS (1)
  1. .DELTA.9-TETRAHYDROCANNABINOL\HERBALS [Suspect]
     Active Substance: .DELTA.9-TETRAHYDROCANNABINOL\HERBALS
     Route: 048
     Dates: start: 20230603, end: 20230603

REACTIONS (12)
  - Product formulation issue [None]
  - Product label issue [None]
  - Product label issue [None]
  - Confusional state [None]
  - Dysarthria [None]
  - Disorientation [None]
  - Dizziness [None]
  - Cognitive disorder [None]
  - Abdominal pain [None]
  - Nausea [None]
  - Poisoning [None]
  - Product complaint [None]

NARRATIVE: CASE EVENT DATE: 20230603
